FAERS Safety Report 7132052-2 (Version None)
Quarter: 2010Q4

REPORT INFORMATION
  Report Type: 
  Country: None (occurrence: None)
  Receive Date: 20101202
  Receipt Date: 20101119
  Transmission Date: 20110411
  Serious: Yes (Death)
  Sender: FDA-Public Use
  Company Number: US-JNJFOC-20101108907

PATIENT
  Age: 12 Month

DRUGS (4)
  1. TRAMADOL HCL [Suspect]
     Indication: ILL-DEFINED DISORDER
     Route: 065
  2. ACETAMINOPHEN [Suspect]
     Route: 065
  3. ACETAMINOPHEN [Suspect]
     Indication: ILL-DEFINED DISORDER
     Route: 065
  4. HYDROCODONE [Suspect]
     Indication: ILL-DEFINED DISORDER
     Route: 065

REACTIONS (1)
  - CHILD ABUSE [None]
